FAERS Safety Report 8957816 (Version 2)
Quarter: 2013Q1

REPORT INFORMATION
  Report Type: Spontaneous
  Country: FR (occurrence: FR)
  Receive Date: 20121211
  Receipt Date: 20130103
  Transmission Date: 20140127
  Serious: Yes (Other)
  Sender: FDA-Public Use
  Company Number: FR-ALLERGAN-1216820US

PATIENT
  Age: 15 Month
  Sex: Female

DRUGS (5)
  1. BOTOX [Suspect]
     Indication: CONGENITAL MEGACOLON
     Dosage: 32 UNITS, SINGLE, 4 INJECTION SITES (8 UNITS EACH)
     Dates: start: 20110705, end: 20110705
  2. BOTOX [Suspect]
     Dosage: 32 UNITS, SINGLE
     Dates: start: 20110829, end: 20110829
  3. BOTOX [Suspect]
     Dosage: 32 UNITS, SINGLE, 4 INJECTION SITES (8 UNITS EACH)
     Dates: start: 20111206, end: 20111206
  4. BOTOX [Suspect]
     Dosage: 40 UNITS, SINGLE
     Dates: start: 20120511, end: 20120511
  5. BOTOX [Suspect]
     Dosage: 48 UNITS, SINGLE
     Dates: start: 20120808, end: 20120808

REACTIONS (2)
  - Congenital megacolon [Not Recovered/Not Resolved]
  - Drug effect decreased [Unknown]
